FAERS Safety Report 25863645 (Version 1)
Quarter: 2025Q3

REPORT INFORMATION
  Report Type: Spontaneous
  Country: US (occurrence: None)
  Receive Date: 20250929
  Receipt Date: 20250929
  Transmission Date: 20251020
  Serious: Yes (Other)
  Sender: FDA-CTU
  Company Number: None

PATIENT
  Age: 26 Year
  Sex: Female
  Weight: 61.23 kg

DRUGS (3)
  1. AVSOLA [Suspect]
     Active Substance: INFLIXIMAB-AXXQ
     Indication: Crohn^s disease
     Dosage: OTHER FREQUENCY : EVERY 6 WEEKS;?
     Route: 042
  2. REMICADE [Concomitant]
     Active Substance: INFLIXIMAB
     Dates: start: 20200720, end: 20230130
  3. AVSOLA [Concomitant]
     Active Substance: INFLIXIMAB-AXXQ
     Dates: start: 20230131, end: 20250925

REACTIONS (8)
  - Protein urine present [None]
  - Mesangioproliferative glomerulonephritis [None]
  - Renal tubular disorder [None]
  - Arteriosclerosis [None]
  - Glomerulosclerosis [None]
  - Tubulointerstitial nephritis [None]
  - Nephropathy toxic [None]
  - White blood cells urine positive [None]

NARRATIVE: CASE EVENT DATE: 20250925
